FAERS Safety Report 5280340-7 (Version None)
Quarter: 2007Q1

REPORT INFORMATION
  Report Type: 
  Country: None (occurrence: None)
  Receive Date: 20070329
  Receipt Date: 20070326
  Transmission Date: 20070707
  Serious: Yes (Hospitalization)
  Sender: FDA-Public Use
  Company Number: US-BRISTOL-MYERS SQUIBB COMPANY-13727102

PATIENT
  Age: 2 Year
  Sex: Male

DRUGS (2)
  1. TOBRAMYCIN [Suspect]
     Indication: PSEUDOMONAS INFECTION
     Route: 055
  2. CEFTAZIDIME [Suspect]
     Indication: STAPHYLOCOCCAL INFECTION

REACTIONS (4)
  - BRONCHOSPASM [None]
  - EOSINOPHILIA [None]
  - HYPERSENSITIVITY [None]
  - LUNG INFILTRATION [None]
